FAERS Safety Report 22816321 (Version 2)
Quarter: 2024Q3

REPORT INFORMATION
  Report Type: Spontaneous
  Country: PT (occurrence: PT)
  Receive Date: 20230811
  Receipt Date: 20240830
  Transmission Date: 20241017
  Serious: Yes (Life-Threatening, Disabling)
  Sender: TEVA
  Company Number: None

PATIENT
  Age: 30 Year
  Sex: Female

DRUGS (4)
  1. LEVOFLOXACIN [Suspect]
     Active Substance: LEVOFLOXACIN
     Indication: Tuberculosis
     Dosage: DOSAGE TEXT: 750 MG 1X DAY (500MG + 250MG),
     Route: 048
     Dates: end: 20230407
  2. ISONIAZID [Concomitant]
     Active Substance: ISONIAZID
     Indication: Tuberculosis
     Route: 065
  3. PYRAZINAMIDE [Concomitant]
     Active Substance: PYRAZINAMIDE
     Indication: Tuberculosis
     Route: 065
  4. ETHAMBUTOL [Concomitant]
     Active Substance: ETHAMBUTOL HYDROCHLORIDE
     Indication: Tuberculosis
     Route: 065

REACTIONS (13)
  - Hallucination [Recovered/Resolved]
  - Movement disorder [Recovered/Resolved]
  - Palpitations [Recovered/Resolved]
  - Tremor [Recovered/Resolved]
  - Arthralgia [Recovering/Resolving]
  - Depressed mood [Recovered/Resolved]
  - Confusional state [Recovered/Resolved]
  - Myalgia [Recovering/Resolving]
  - Muscular weakness [Recovering/Resolving]
  - Nightmare [Recovered/Resolved]
  - Gait disturbance [Recovered/Resolved]
  - Myalgia [Recovered/Resolved]
  - Paraesthesia [Recovered/Resolved]
